FAERS Safety Report 15973336 (Version 1)
Quarter: 2019Q1

REPORT INFORMATION
  Report Type: Spontaneous
  Country: US (occurrence: US)
  Receive Date: 20190216
  Receipt Date: 20190216
  Transmission Date: 20190418
  Serious: Yes (Other)
  Sender: FDA-Public Use
  Company Number: US-AMGEN-USASP2019021816

PATIENT
  Age: 66 Year
  Sex: Female

DRUGS (2)
  1. EPOGEN [Suspect]
     Active Substance: ERYTHROPOIETIN
     Indication: PRODUCT USED FOR UNKNOWN INDICATION
     Route: 065
  2. PROLIA [Suspect]
     Active Substance: DENOSUMAB
     Indication: OSTEOPOROSIS POSTMENOPAUSAL
     Dosage: 60 MG
     Route: 065
     Dates: start: 2015

REACTIONS (8)
  - Foot fracture [Unknown]
  - Autoimmune disorder [Unknown]
  - Limb injury [Unknown]
  - Viral infection [Unknown]
  - Rib fracture [Unknown]
  - Parathyroid disorder [Unknown]
  - Lumbar vertebral fracture [Unknown]
  - Fall [Unknown]
